FAERS Safety Report 9909674 (Version 3)
Quarter: 2014Q2

REPORT INFORMATION
  Report Type: Report from Study
  Country: DE (occurrence: DE)
  Receive Date: 20140219
  Receipt Date: 20140624
  Transmission Date: 20141212
  Serious: Yes (Hospitalization)
  Sender: FDA-Public Use
  Company Number: DE-TEVA-463164USA

PATIENT
  Sex: Female
  Weight: 58 kg

DRUGS (14)
  1. BENDAMUSTINE [Suspect]
     Indication: CHRONIC LYMPHOCYTIC LEUKAEMIA
     Route: 042
     Dates: start: 20131219
  2. RITUXIMAB [Suspect]
     Indication: CHRONIC LYMPHOCYTIC LEUKAEMIA
     Route: 065
     Dates: start: 20131217
  3. BENZBROMARONE [Concomitant]
     Indication: MINERAL SUPPLEMENTATION
     Route: 048
  4. CLEMASTIN [Concomitant]
     Indication: PREMEDICATION
     Route: 042
  5. DEXAMETHASONE [Concomitant]
     Indication: PREMEDICATION
     Route: 042
  6. RANITIDINE [Concomitant]
     Indication: PREMEDICATION
     Route: 042
  7. GRANISETRON [Concomitant]
     Indication: PREMEDICATION
     Route: 042
  8. INTRATECT [Concomitant]
     Indication: SECONDARY IMMUNODEFICIENCY
     Route: 042
  9. METOPROLOL SUCCINATE [Concomitant]
     Indication: HYPERTENSION
     Route: 048
  10. AMLODIPINE [Concomitant]
     Indication: HYPERTENSION
     Route: 048
  11. AMLODIPINE [Concomitant]
     Route: 048
  12. OLMESARTAN MEDOXOMIL [Concomitant]
     Indication: HYPERTENSION
     Route: 065
  13. OLMESARTAN MEDOXOMIL [Concomitant]
  14. MEBEVERINE [Concomitant]
     Indication: ABDOMINAL PAIN UPPER
     Route: 048

REACTIONS (1)
  - Atrial fibrillation [Recovered/Resolved]
